FAERS Safety Report 4340722-4 (Version None)
Quarter: 2004Q2

REPORT INFORMATION
  Report Type: 
  Country: None (occurrence: None)
  Receive Date: 20040414
  Receipt Date: 20040402
  Transmission Date: 20050107
  Serious: Yes (Hospitalization, Other)
  Sender: FDA-Public Use
  Company Number: US-JNJFOC-20040206446

PATIENT
  Age: 71 Year
  Sex: Female
  Weight: 74.3899 kg

DRUGS (19)
  1. REMICADE [Suspect]
     Indication: RHEUMATOID ARTHRITIS
     Dosage: 200 MG 2 IN INTRAVENOUS
     Route: 042
     Dates: start: 19991230, end: 20000113
  2. ATENOLOL [Concomitant]
  3. LANOXIN [Concomitant]
  4. ALPRAZOLAM [Concomitant]
  5. MESALAZINE () MESALAZINE [Concomitant]
  6. ADVAIR (SERETIDE MITE) [Concomitant]
  7. KLOR-CON [Concomitant]
  8. HYDROCODONE (HYDROCODONE) [Concomitant]
  9. HYDROCHLOROTHIAZIDE [Concomitant]
  10. ACIPHEX [Concomitant]
  11. PREMPRO 14/14 [Concomitant]
  12. BEXTRA [Concomitant]
  13. FOLIC ACID [Concomitant]
  14. TAMBOCOR [Concomitant]
  15. ALBUTEROL [Concomitant]
  16. MECLIZINE [Concomitant]
  17. PREVIDENT [Concomitant]
  18. CLINDAMYCIN HCL [Concomitant]
  19. PREMPRO 14/14 [Concomitant]

REACTIONS (9)
  - ATRIAL FIBRILLATION [None]
  - EMPHYSEMA [None]
  - HEADACHE [None]
  - INFUSION RELATED REACTION [None]
  - LUNG NEOPLASM [None]
  - LUNG SQUAMOUS CELL CARCINOMA STAGE III [None]
  - PNEUMONIA [None]
  - POST PROCEDURAL COMPLICATION [None]
  - PRURITUS [None]
